FAERS Safety Report 15082394 (Version 3)
Quarter: 2019Q2

REPORT INFORMATION
  Report Type: Report from Study
  Country: GB (occurrence: GB)
  Receive Date: 20180628
  Receipt Date: 20190528
  Transmission Date: 20190711
  Serious: Yes (Death, Hospitalization, Other)
  Sender: FDA-Public Use
  Company Number: GB-PFIZER INC-2018255875

PATIENT
  Age: 4 Year
  Sex: Female
  Weight: 17.4 kg

DRUGS (74)
  1. ETOPOSIDE. [Concomitant]
     Active Substance: ETOPOSIDE
     Dosage: UNK
     Route: 042
     Dates: start: 20171215
  2. MEROPENEM. [Concomitant]
     Active Substance: MEROPENEM
     Indication: ANTIBIOTIC THERAPY
     Dosage: 1035 MG, 1X/DAY
     Route: 042
     Dates: start: 20171205, end: 20171212
  3. RITUXIMAB. [Concomitant]
     Active Substance: RITUXIMAB
     Dosage: 270 MG, 1X/DAY
     Route: 042
     Dates: start: 20171217, end: 20171217
  4. RITUXIMAB. [Concomitant]
     Active Substance: RITUXIMAB
     Dosage: 270 MG, 1X/DAY
     Route: 042
     Dates: end: 20180118
  5. CARBOPLATIN. [Concomitant]
     Active Substance: CARBOPLATIN
     Dosage: 450 MG, 1X/DAY
     Route: 042
     Dates: start: 20180110, end: 20180110
  6. COTRIMOXAZOLE [Concomitant]
     Active Substance: SULFAMETHOXAZOLE\TRIMETHOPRIM
     Dosage: 480MG ONCE DAILY (1 SACHET)
     Route: 048
     Dates: start: 20180217, end: 20180223
  7. PARACETAMOL [Concomitant]
     Active Substance: ACETAMINOPHEN
     Indication: ANALGESIC THERAPY
     Dosage: 250MG ONCE DAILY (1 SACHET)
     Route: 048
     Dates: start: 20171205, end: 20171230
  8. PARACETAMOL [Concomitant]
     Active Substance: ACETAMINOPHEN
     Dosage: 275 MG, AS NEEDED
     Route: 048
     Dates: start: 20180205
  9. PIPERACILLIN/TAZOBACTAM [Concomitant]
     Active Substance: PIPERACILLIN SODIUM\TAZOBACTAM SODIUM
     Dosage: 6084 MG, 1X/DAY
     Route: 042
     Dates: start: 20180216, end: 20180223
  10. PIPERACILLIN/TAZOBACTAM [Concomitant]
     Active Substance: PIPERACILLIN SODIUM\TAZOBACTAM SODIUM
     Dosage: 6264 MG, 1X/DAY (1 SACHET)
     Route: 042
     Dates: start: 20171226, end: 20180101
  11. OMNIPAQUE [Concomitant]
     Active Substance: IOHEXOL
     Dosage: 34ML UNIT DOSE (STAT)
     Route: 042
     Dates: start: 20171207, end: 20171207
  12. ONDANSETRON [Concomitant]
     Active Substance: ONDANSETRON
     Dosage: 10.8MG ONCE DAILY (1 SACHET)
     Route: 042
     Dates: start: 20180207, end: 20180304
  13. IFOSFAMIDE. [Concomitant]
     Active Substance: IFOSFAMIDE
     Dosage: UNK
     Route: 042
     Dates: start: 20171215
  14. IFOSFAMIDE. [Concomitant]
     Active Substance: IFOSFAMIDE
     Dosage: 2100 MG, 1X/DAY
     Route: 042
     Dates: start: 20171217, end: 20171219
  15. ETOPOSIDE. [Concomitant]
     Active Substance: ETOPOSIDE
     Dosage: 70 MG, 1X/DAY
     Route: 042
     Dates: start: 20180110, end: 20180112
  16. ETOPOSIDE. [Concomitant]
     Active Substance: ETOPOSIDE
     Dosage: 70 MG, 1X/DAY
     Route: 042
     Dates: end: 20180118
  17. CHLORPHENAMINE [Concomitant]
     Active Substance: CHLORPHENIRAMINE MALEATE
     Indication: ANTIALLERGIC THERAPY
     Dosage: 2.5 MG, 1X/DAY
     Route: 042
     Dates: start: 20171215, end: 20171231
  18. PARACETAMOL [Concomitant]
     Active Substance: ACETAMINOPHEN
     Indication: PYREXIA
     Dosage: 250MG ONCE DAILY (1 SACHET)
     Route: 048
     Dates: start: 20171205, end: 20171230
  19. PREDNISONE. [Concomitant]
     Active Substance: PREDNISONE
     Indication: STEROID THERAPY
     Dosage: 28 MG, 1X/DAY
     Route: 048
     Dates: start: 20171207, end: 20171212
  20. ONDANSETRON [Concomitant]
     Active Substance: ONDANSETRON
     Indication: NAUSEA
     Dosage: 10.8MG ONCE DAILY (1 SACHET)
     Route: 042
     Dates: start: 20171206, end: 20171221
  21. ONDANSETRON [Concomitant]
     Active Substance: ONDANSETRON
     Indication: ANTIEMETIC SUPPORTIVE CARE
     Dosage: 10.8MG ONCE DAILY (1 SACHET)
     Route: 042
     Dates: start: 20171221, end: 20171221
  22. IFOSFAMIDE. [Concomitant]
     Active Substance: IFOSFAMIDE
     Dosage: 2100 MG, 1X/DAY
     Route: 042
     Dates: end: 20180118
  23. ETOPOSIDE. [Concomitant]
     Active Substance: ETOPOSIDE
     Dosage: 70 MG, 1X/DAY
     Route: 042
     Dates: start: 20180302, end: 20180306
  24. CARBOPLATIN. [Concomitant]
     Active Substance: CARBOPLATIN
     Dosage: 450 MG, 1X/DAY
     Route: 042
     Dates: start: 20171217, end: 20171217
  25. MOVICOL [Concomitant]
     Active Substance: POLYETHYLENE GLYCOL 3350\POTASSIUM CHLORIDE\SODIUM BICARBONATE\SODIUM CHLORIDE
     Dosage: 1 DF, 1X/DAY (SACHET)
     Route: 048
     Dates: start: 20171212, end: 20171212
  26. NESINA [Concomitant]
     Active Substance: ALOGLIPTIN BENZOATE
     Dosage: 1720 MG, 1X/DAY
     Route: 042
     Dates: start: 20171217, end: 20171219
  27. CYTARABINE. [Concomitant]
     Active Substance: CYTARABINE
     Dosage: 1400 MG, 1X/DAY
     Route: 042
     Dates: start: 20180302, end: 20180306
  28. DEXAMETHASONE. [Concomitant]
     Active Substance: DEXAMETHASONE
     Indication: VOMITING
     Dosage: 14.4 MG, 1X/DAY
     Route: 048
     Dates: start: 20171219, end: 20171224
  29. FILGRASTIM [Concomitant]
     Active Substance: FILGRASTIM
     Dosage: 168 UG, 1X/DAY
     Route: 042
     Dates: start: 20171215, end: 20171215
  30. ETOPOSIDE. [Concomitant]
     Active Substance: ETOPOSIDE
     Dosage: 70 MG, 1X/DAY
     Route: 042
     Dates: start: 20171217, end: 20171219
  31. RITUXIMAB. [Concomitant]
     Active Substance: RITUXIMAB
     Dosage: 260 MG, 1X/DAY
     Route: 042
     Dates: start: 20180301, end: 20180301
  32. COTRIMOXAZOLE [Concomitant]
     Active Substance: SULFAMETHOXAZOLE\TRIMETHOPRIM
     Indication: PROPHYLAXIS
     Dosage: 480MG ONCE DAILY (1 SACHET)
     Route: 048
     Dates: start: 20171223, end: 20171225
  33. PIPERACILLIN/TAZOBACTAM [Concomitant]
     Active Substance: PIPERACILLIN SODIUM\TAZOBACTAM SODIUM
     Indication: ANTIBIOTIC THERAPY
     Dosage: 6120 MG, 1X/DAY
     Route: 042
     Dates: start: 20171214, end: 20171216
  34. RASBURICASE [Concomitant]
     Active Substance: RASBURICASE
     Indication: TUMOUR LYSIS SYNDROME
     Dosage: 3500 UG, 1X/DAY
     Route: 042
     Dates: start: 20171207, end: 20171207
  35. MORPHINE SULPHATE [Concomitant]
     Active Substance: MORPHINE SULFATE
     Dosage: 3320 UG, 1X/DAY
     Route: 048
     Dates: start: 20180208
  36. SANDO K [POTASSIUM CHLORIDE] [Concomitant]
     Dosage: 1 DF, 2X/DAY
  37. CEFIXIME. [Concomitant]
     Active Substance: CEFIXIME
     Indication: PROPHYLAXIS
     Dosage: 140 MG, 1X/DAY
     Route: 048
     Dates: start: 20180112, end: 20180129
  38. RANITIDINE. [Concomitant]
     Active Substance: RANITIDINE
     Indication: GASTROINTESTINAL DISORDER THERAPY
     Dosage: 75 MG, 1X/DAY (1 SACHET)
     Route: 048
     Dates: start: 20171207
  39. PARACETAMOL [Concomitant]
     Active Substance: ACETAMINOPHEN
     Dosage: 275 MG, AS NEEDED
     Route: 048
     Dates: start: 20180205, end: 20180307
  40. MOVICOL [Concomitant]
     Active Substance: POLYETHYLENE GLYCOL 3350\POTASSIUM CHLORIDE\SODIUM BICARBONATE\SODIUM CHLORIDE
     Dosage: 4 DF, 1X/DAY (SACHET)
     Route: 048
     Dates: start: 20171230, end: 20171231
  41. MAGNESIUM [Concomitant]
     Active Substance: MAGNESIUM
     Indication: NUTRITIONAL SUPPLEMENTATION
     Dosage: 12 MMOL, 1X/DAY
     Route: 048
     Dates: start: 20180207, end: 20180219
  42. POTASSIUM [Concomitant]
     Active Substance: POTASSIUM
     Dosage: 2 DF, 1X/DAY
     Route: 048
     Dates: start: 20171220, end: 20171223
  43. CYTARABINE. [Concomitant]
     Active Substance: CYTARABINE
     Dosage: 35 MG, 1X/DAY
     Route: 042
     Dates: start: 20180302, end: 20180306
  44. MICAFUNGIN. [Concomitant]
     Active Substance: MICAFUNGIN SODIUM
     Indication: ANTIFUNGAL PROPHYLAXIS
     Dosage: 33 MG, 1X/DAY
     Route: 017
     Dates: start: 20180119
  45. DEXAMETHASONE. [Concomitant]
     Active Substance: DEXAMETHASONE
     Indication: NAUSEA
     Dosage: 14.4 MG, 1X/DAY
     Route: 048
     Dates: start: 20171219, end: 20171224
  46. ALLOPURINOL. [Concomitant]
     Active Substance: ALLOPURINOL
     Indication: HYPERURICAEMIA
     Dosage: 216 MG, 1X/DAY
     Route: 048
     Dates: start: 20171211, end: 20171219
  47. IMBRUVICA [Suspect]
     Active Substance: IBRUTINIB
     Dosage: 231 MG, 1X/DAY
     Route: 048
     Dates: start: 20171222
  48. ONDANSETRON [Concomitant]
     Active Substance: ONDANSETRON
     Indication: VOMITING
     Dosage: 10.8MG ONCE DAILY (1 SACHET)
     Route: 048
     Dates: start: 20171221
  49. CARBOPLATIN. [Concomitant]
     Active Substance: CARBOPLATIN
     Dosage: UNK
     Route: 042
     Dates: start: 20171215
  50. PARACETAMOL [Concomitant]
     Active Substance: ACETAMINOPHEN
     Indication: PAIN
     Dosage: 275MG UNIT DOSE AS NECESSARY
     Route: 048
     Dates: start: 20180205, end: 20180307
  51. MOVICOL [Concomitant]
     Active Substance: POLYETHYLENE GLYCOL 3350\POTASSIUM CHLORIDE\SODIUM BICARBONATE\SODIUM CHLORIDE
     Indication: CONSTIPATION
     Dosage: 6 DF, 1X/DAY (SACHET)
     Route: 048
     Dates: start: 20171231, end: 20180101
  52. NESINA [Concomitant]
     Active Substance: ALOGLIPTIN BENZOATE
     Dosage: 2150 MG, 1X/DAY
     Route: 042
     Dates: start: 20180110
  53. CEFIXIME. [Concomitant]
     Active Substance: CEFIXIME
     Dosage: 200 MG, UNK
     Route: 048
     Dates: start: 20180213, end: 20180329
  54. IMBRUVICA [Suspect]
     Active Substance: IBRUTINIB
     Indication: NON-HODGKIN^S LYMPHOMA RECURRENT
     Dosage: 231 MG, 1X/DAY
     Route: 048
     Dates: start: 20171222
  55. IFOSFAMIDE. [Concomitant]
     Active Substance: IFOSFAMIDE
     Dosage: 2100 MG, 1X/DAY
     Route: 042
     Dates: start: 20180110, end: 20180112
  56. COTRIMOXAZOLE [Concomitant]
     Active Substance: SULFAMETHOXAZOLE\TRIMETHOPRIM
     Dosage: 480MG ONCE DAILY (1 SACHET)
     Route: 048
     Dates: start: 20180113
  57. MOVICOL [Concomitant]
     Active Substance: POLYETHYLENE GLYCOL 3350\POTASSIUM CHLORIDE\SODIUM BICARBONATE\SODIUM CHLORIDE
     Dosage: UNK (2 SACHETS)
     Route: 048
     Dates: start: 20180109
  58. CIPROFLOXACIN. [Concomitant]
     Active Substance: CIPROFLOXACIN
     Indication: ANTIBIOTIC THERAPY
     Dosage: 145 MG, 1X/DAY
     Route: 048
     Dates: start: 20171216, end: 20171221
  59. MAGNESIUM [Concomitant]
     Active Substance: MAGNESIUM
     Dosage: 24 MMOL, 1X/DAY
     Route: 048
     Dates: start: 20180220, end: 20180302
  60. AMBISOME [Concomitant]
     Active Substance: AMPHOTERICIN B
     Indication: ANTIFUNGAL PROPHYLAXIS
     Dosage: 45 MG, 1X/DAY
     Route: 042
     Dates: start: 20171212, end: 20171229
  61. AMBISOME [Concomitant]
     Active Substance: AMPHOTERICIN B
     Dosage: 50 MG, 1X/DAY
     Route: 042
     Dates: start: 20171230
  62. POTASSIUM [Concomitant]
     Active Substance: POTASSIUM
     Indication: MINERAL SUPPLEMENTATION
     Dosage: 4 DF, 1X/DAY
     Route: 048
     Dates: start: 20180303
  63. MICAFUNGIN. [Concomitant]
     Active Substance: MICAFUNGIN SODIUM
     Dosage: 336 MG, 1X/DAY
     Route: 042
     Dates: start: 20180119, end: 20180331
  64. MICAFUNGIN. [Concomitant]
     Active Substance: MICAFUNGIN SODIUM
     Dosage: 35 MG, 1X/DAY
     Route: 042
     Dates: start: 20180221, end: 20180304
  65. TAZOCIN [Suspect]
     Active Substance: PIPERACILLIN SODIUM\TAZOBACTAM SODIUM
     Indication: ANTIBIOTIC THERAPY
     Dosage: 1575 MG, 1X/DAY
     Route: 042
     Dates: start: 20180123, end: 20180126
  66. FILGRASTIM [Concomitant]
     Active Substance: FILGRASTIM
     Indication: COLONY STIMULATING FACTOR THERAPY
     Dosage: 84 UG, 1X/DAY
     Route: 042
     Dates: start: 20171213, end: 20171214
  67. RITUXIMAB. [Concomitant]
     Active Substance: RITUXIMAB
     Dosage: 270 MG, 1X/DAY
     Route: 042
     Dates: start: 20171215, end: 20171215
  68. RITUXIMAB. [Concomitant]
     Active Substance: RITUXIMAB
     Dosage: 270 MG, 1X/DAY
     Route: 042
     Dates: start: 20180110, end: 20180110
  69. CARBOPLATIN. [Concomitant]
     Active Substance: CARBOPLATIN
     Dosage: 450 MG, 1X/DAY
     Route: 042
     Dates: end: 20180118
  70. CHLORPHENAMINE [Concomitant]
     Active Substance: CHLORPHENIRAMINE MALEATE
     Indication: PRURITUS
     Dosage: 2.5 MG, 1X/DAY
     Route: 042
     Dates: start: 20171215, end: 20171231
  71. AMILORIDE [Concomitant]
     Active Substance: AMILORIDE
     Indication: MINERAL SUPPLEMENTATION
     Dosage: 3.4 MG, 1X/DAY
     Route: 048
     Dates: start: 20171230
  72. AMILORIDE [Concomitant]
     Active Substance: AMILORIDE
     Dosage: 3.3 MG, 1X/DAY
     Route: 048
     Dates: start: 20180222, end: 20180307
  73. MORPHINE SULPHATE [Concomitant]
     Active Substance: MORPHINE SULFATE
     Indication: ANALGESIC THERAPY
     Dosage: 3320 UG, 1X/DAY
     Route: 048
     Dates: start: 20180209, end: 20180209
  74. SANDO K [POTASSIUM CHLORIDE] [Concomitant]
     Dosage: 2 DF, 1X/DAY
     Route: 048
     Dates: start: 20180110, end: 20180130

REACTIONS (19)
  - Fungal infection [Fatal]
  - Hypotension [Recovered/Resolved]
  - Dry eye [Recovered/Resolved]
  - Vomiting [Recovered/Resolved]
  - Oropharyngeal pain [Recovered/Resolved]
  - Alanine aminotransferase increased [Recovered/Resolved]
  - Constipation [Recovered/Resolved]
  - Febrile neutropenia [Recovered/Resolved]
  - Abdominal pain [Recovered/Resolved]
  - Gamma-glutamyltransferase increased [Unknown]
  - Eye pain [Recovered/Resolved]
  - Aspartate aminotransferase increased [Recovered/Resolved]
  - Lung infection [Recovered/Resolved]
  - Pruritus [Recovered/Resolved]
  - Rash maculo-papular [Recovered/Resolved]
  - Neoplasm progression [Fatal]
  - Back pain [Recovered/Resolved]
  - Lung consolidation [Recovered/Resolved]
  - Nausea [Recovered/Resolved]

NARRATIVE: CASE EVENT DATE: 2017
